FAERS Safety Report 17073524 (Version 5)
Quarter: 2024Q2

REPORT INFORMATION
  Report Type: Spontaneous
  Country: BR (occurrence: BR)
  Receive Date: 20191126
  Receipt Date: 20240410
  Transmission Date: 20240716
  Serious: Yes (Hospitalization)
  Sender: FDA-Public Use
  Company Number: BR-BIOGEN-2019BI00802730

PATIENT
  Sex: Female
  Weight: 74 kg

DRUGS (8)
  1. TYSABRI [Suspect]
     Active Substance: NATALIZUMAB
     Indication: Multiple sclerosis
     Dosage: INFUSED OVER ONE HOUR
     Route: 050
     Dates: start: 20190117
  2. TYSABRI [Suspect]
     Active Substance: NATALIZUMAB
     Dosage: INFUSED OVER ONE HOUR
     Route: 050
     Dates: start: 20190117
  3. TYSABRI [Suspect]
     Active Substance: NATALIZUMAB
     Route: 050
     Dates: start: 201901
  4. TYSABRI [Suspect]
     Active Substance: NATALIZUMAB
     Dosage: 0.5 DILUTE 300MG IN 100ML SERUM
     Route: 050
     Dates: start: 201901
  5. FINGOLIMOD [Suspect]
     Active Substance: FINGOLIMOD
     Indication: Product used for unknown indication
     Route: 050
     Dates: start: 2018
  6. FINGOLIMOD [Suspect]
     Active Substance: FINGOLIMOD
     Route: 050
     Dates: start: 2016
  7. VITAMIN D [Concomitant]
     Active Substance: VITAMIN D NOS
     Indication: Vitamin D decreased
     Route: 050
  8. COLLAGEN [Concomitant]
     Active Substance: COLLAGEN
     Indication: Skin disorder
     Route: 050

REACTIONS (8)
  - Benign breast neoplasm [Recovered/Resolved]
  - Breast calcifications [Recovered/Resolved]
  - Malaise [Recovered/Resolved]
  - Therapeutic product effect decreased [Unknown]
  - Insomnia [Not Recovered/Not Resolved]
  - Post procedural haemorrhage [Recovered/Resolved]
  - Post procedural complication [Recovered/Resolved]
  - Weight increased [Not Recovered/Not Resolved]

NARRATIVE: CASE EVENT DATE: 20200101
